FAERS Safety Report 18032314 (Version 3)
Quarter: 2022Q1

REPORT INFORMATION
  Report Type: Spontaneous
  Country: ES (occurrence: ES)
  Receive Date: 20200716
  Receipt Date: 20220209
  Transmission Date: 20220423
  Serious: Yes (Hospitalization, Other)
  Sender: FDA-Public Use
  Company Number: ES-GLAXOSMITHKLINE-ES2020EME128109

PATIENT
  Age: 71 Year
  Sex: Female
  Weight: 52 kg

DRUGS (5)
  1. NIRAPARIB [Suspect]
     Active Substance: NIRAPARIB
     Indication: Ovarian cancer
     Dosage: 200 MG, QD
     Route: 048
     Dates: start: 20200622, end: 20200703
  2. CARBOPLATIN [Concomitant]
     Active Substance: CARBOPLATIN
     Indication: Ovarian cancer
     Dosage: UNK
  3. CARBOPLATIN [Concomitant]
     Active Substance: CARBOPLATIN
     Dosage: UNK
     Dates: start: 201612
  4. PACLITAXEL [Concomitant]
     Active Substance: PACLITAXEL
     Indication: Ovarian cancer
     Dosage: UNK
  5. GEMCITABINE [Concomitant]
     Active Substance: GEMCITABINE
     Indication: Malignant peritoneal neoplasm
     Dosage: UNK
     Dates: start: 201612

REACTIONS (8)
  - Toxic skin eruption [Recovering/Resolving]
  - Erythema multiforme [Recovered/Resolved]
  - Ovarian cancer recurrent [Unknown]
  - Rash [Recovered/Resolved]
  - Rash erythematous [Recovered/Resolved]
  - Papule [Recovered/Resolved]
  - Oral mucosa erosion [Recovered/Resolved]
  - Asthenia [Recovered/Resolved]

NARRATIVE: CASE EVENT DATE: 20200703
